FAERS Safety Report 9219420 (Version 1)
Quarter: 2013Q2

REPORT INFORMATION
  Report Type: Spontaneous
  Country: US (occurrence: US)
  Receive Date: 20130409
  Receipt Date: 20130409
  Transmission Date: 20140414
  Serious: No
  Sender: FDA-Public Use
  Company Number: US-PFIZER INC-2013106343

PATIENT
  Age: 29 Year
  Sex: Male
  Weight: 88 kg

DRUGS (2)
  1. AROMASIN [Suspect]
     Indication: BLOOD OESTROGEN INCREASED
     Dosage: 25 MG, 2X/DAY
     Route: 048
     Dates: start: 201302
  2. TESTOSTERONE CIPIONATE [Suspect]
     Indication: BLOOD TESTOSTERONE DECREASED
     Dosage: UNK
     Dates: start: 201212, end: 2013

REACTIONS (5)
  - Blood oestrogen abnormal [Unknown]
  - Blood oestrogen increased [Unknown]
  - Blood oestrogen decreased [Unknown]
  - Inappropriate schedule of drug administration [Unknown]
  - Off label use [Unknown]
